FAERS Safety Report 21940622 (Version 1)
Quarter: 2023Q1

REPORT INFORMATION
  Report Type: Report from Study
  Country: US (occurrence: US)
  Receive Date: 20230201
  Receipt Date: 20230201
  Transmission Date: 20230418
  Serious: No
  Sender: FDA-Public Use
  Company Number: US-EXELIXIS-CABO-22052009

PATIENT
  Age: 67 Year
  Sex: Female
  Weight: 66.667 kg

DRUGS (1)
  1. CABOMETYX [Suspect]
     Active Substance: CABOZANTINIB S-MALATE
     Indication: Renal cancer
     Dosage: 20 MG, QD
     Route: 048
     Dates: start: 20220511

REACTIONS (10)
  - Nightmare [Unknown]
  - Joint swelling [Not Recovered/Not Resolved]
  - Hypoaesthesia [Unknown]
  - Paraesthesia [Unknown]
  - Alopecia [Unknown]
  - Pain in extremity [Unknown]
  - Fatigue [Unknown]
  - Dry skin [Unknown]
  - Arthralgia [Unknown]
  - Blood sodium decreased [Unknown]

NARRATIVE: CASE EVENT DATE: 20220501
